FAERS Safety Report 21507679 (Version 1)
Quarter: 2022Q4

REPORT INFORMATION
  Report Type: Other
  Country: US (occurrence: US)
  Receive Date: 20221026
  Receipt Date: 20221026
  Transmission Date: 20230113
  Serious: Yes (Life-Threatening)
  Sender: FDA-Public Use
  Company Number: US-C B Fleet Co Inc-202210-US-003205

PATIENT
  Age: 68 Year
  Sex: Female

DRUGS (1)
  1. ASPIRIN [Suspect]
     Active Substance: ASPIRIN
     Indication: Headache
     Dosage: 325 MG

REACTIONS (1)
  - Pulmonary alveolar haemorrhage [Recovered/Resolved]
